FAERS Safety Report 5069422-2 (Version None)
Quarter: 2006Q3

REPORT INFORMATION
  Report Type: 
  Country: None (occurrence: None)
  Receive Date: 20060803
  Receipt Date: 20060131
  Transmission Date: 20061208
  Serious: Yes (Hospitalization, Other)
  Sender: FDA-Public Use
  Company Number: US-BAYER-200610605BWH

PATIENT
  Age: 68 Year
  Sex: Male

DRUGS (10)
  1. SORAFENIB [Suspect]
     Indication: METASTATIC RENAL CELL CARCINOMA
     Route: 048
     Dates: start: 20051101, end: 20051201
  2. SORAFENIB [Suspect]
     Route: 048
     Dates: start: 20060101, end: 20060101
  3. SORAFENIB [Suspect]
     Route: 048
     Dates: start: 20060101, end: 20060301
  4. SORAFENIB [Suspect]
     Dosage: TOTAL DAILY DOSE: 800 MG  UNIT DOSE: 200 MG
     Route: 048
     Dates: start: 20051201, end: 20060401
  5. SYNTHROID [Concomitant]
  6. ZYRTEC [Concomitant]
  7. ZOLOFT [Concomitant]
  8. PRILOSEC [Concomitant]
  9. BENADRYL [Concomitant]
  10. CALCIUM GLUCONATE [Concomitant]

REACTIONS (18)
  - ALOPECIA [None]
  - ASTHENIA [None]
  - DEHYDRATION [None]
  - DIVERTICULUM [None]
  - DRUG ERUPTION [None]
  - DYSPHAGIA [None]
  - GASTRIC HAEMORRHAGE [None]
  - HAEMATOCHEZIA [None]
  - HAEMOGLOBIN DECREASED [None]
  - HAEMORRHAGE [None]
  - INTESTINAL HAEMORRHAGE [None]
  - INTESTINAL PERFORATION [None]
  - MALNUTRITION [None]
  - MEDICAL DEVICE COMPLICATION [None]
  - OESOPHAGEAL STENOSIS [None]
  - PNEUMONIA ASPIRATION [None]
  - RADIATION OESOPHAGITIS [None]
  - RASH [None]
